FAERS Safety Report 9306929 (Version 2)
Quarter: 2013Q3

REPORT INFORMATION
  Report Type: Spontaneous
  Country: JP (occurrence: JP)
  Receive Date: 20130523
  Receipt Date: 20130701
  Transmission Date: 20140515
  Serious: Yes (Hospitalization)
  Sender: FDA-Public Use
  Company Number: PHHY2013JP051626

PATIENT
  Age: 73 Year
  Sex: Male

DRUGS (3)
  1. TEGRETOL [Suspect]
     Indication: EPILEPSY
     Dosage: 400 MG, DAILY
     Route: 048
  2. TEGRETOL [Suspect]
     Dosage: 400 MG, BID
     Route: 048
  3. AMOBAN [Concomitant]
     Dosage: 7.5 MG, UNK
     Route: 048

REACTIONS (2)
  - Presyncope [Unknown]
  - Epilepsy [Unknown]
